FAERS Safety Report 4655149-5 (Version None)
Quarter: 2005Q2

REPORT INFORMATION
  Report Type: 
  Country: None (occurrence: None)
  Receive Date: 20050505
  Receipt Date: 20050503
  Transmission Date: 20051028
  Serious: Yes (Death)
  Sender: FDA-Public Use
  Company Number: 2005-127913-NL

PATIENT
  Age: 55 Year
  Sex: Female

DRUGS (6)
  1. MIRTAZAPINE [Suspect]
     Indication: DEPRESSION
     Dosage: 15 MG QD
     Route: 048
     Dates: start: 20041103
  2. GALANTAMINE [Suspect]
     Indication: DEMENTIA
     Dosage: 8 MG BID
     Route: 048
     Dates: start: 20050323
  3. THYROXINE SODIUM [Concomitant]
  4. INSULIN [Concomitant]
  5. FRUSEMIDE [Concomitant]
  6. ESTROGENS CONJUGATED [Concomitant]

REACTIONS (1)
  - SUDDEN DEATH [None]
